FAERS Safety Report 10482399 (Version 8)
Quarter: 2015Q4

REPORT INFORMATION
  Report Type: Report from Study
  Country: US (occurrence: US)
  Receive Date: 20140929
  Receipt Date: 20151103
  Transmission Date: 20160304
  Serious: Yes (Other)
  Sender: FDA-Public Use
  Company Number: US-SA-2014SA106291

PATIENT
  Age: 66 Year
  Sex: Female

DRUGS (2)
  1. AUBAGIO [Suspect]
     Active Substance: TERIFLUNOMIDE
     Indication: MULTIPLE SCLEROSIS
     Route: 048
     Dates: start: 20140723
  2. IRON [Concomitant]
     Active Substance: IRON
     Indication: ANAEMIA

REACTIONS (11)
  - Arthralgia [Unknown]
  - Hypoaesthesia [Unknown]
  - Sleep inertia [Unknown]
  - Unevaluable event [Recovered/Resolved]
  - Radius fracture [Unknown]
  - Blood pressure increased [Unknown]
  - Alopecia [Not Recovered/Not Resolved]
  - Paraesthesia [Unknown]
  - Headache [Unknown]
  - Back pain [Unknown]
  - Memory impairment [Unknown]

NARRATIVE: CASE EVENT DATE: 201407
